FAERS Safety Report 8610469-4 (Version None)
Quarter: 2012Q3

REPORT INFORMATION
  Report Type: 
  Country: None (occurrence: None)
  Receive Date: 20120822
  Receipt Date: 20120607
  Transmission Date: 20120928
  Serious: No
  Sender: FDA-Public Use
  Company Number: US-PFIZER INC-2012204550

PATIENT
  Sex: Female

DRUGS (2)
  1. ALPRAZOLAM [Suspect]
     Indication: ANXIETY
     Dosage: UNK
  2. LUNESTA [Concomitant]
     Indication: SOMNOLENCE
     Dosage: UNK

REACTIONS (1)
  - DRUG INEFFECTIVE [None]
